FAERS Safety Report 23226115 (Version 1)
Quarter: 2023Q4

REPORT INFORMATION
  Report Type: Spontaneous
  Country: CN (occurrence: None)
  Receive Date: 20231124
  Receipt Date: 20231124
  Transmission Date: 20240110
  Serious: Yes (Other)
  Sender: FDA-Public Use
  Company Number: 2023A266674

PATIENT
  Age: 74 Year
  Sex: Male
  Weight: 80 kg

DRUGS (2)
  1. PULMICORT TURBUHALER [Suspect]
     Active Substance: BUDESONIDE
     Indication: Tachypnoea
     Dosage: 1.0MG ONCE/SINGLE ADMINISTRATION
     Route: 055
     Dates: start: 20231106, end: 20231106
  2. ATROVENT [Suspect]
     Active Substance: IPRATROPIUM BROMIDE
     Indication: Tachypnoea
     Dosage: 25.0UG ONCE/SINGLE ADMINISTRATION
     Route: 055
     Dates: start: 20231106, end: 20231106

REACTIONS (3)
  - Drug eruption [Recovering/Resolving]
  - Swelling face [Unknown]
  - Flushing [Unknown]

NARRATIVE: CASE EVENT DATE: 20231106
